FAERS Safety Report 13060292 (Version 3)
Quarter: 2019Q3

REPORT INFORMATION
  Report Type: Spontaneous
  Country: HT (occurrence: HT)
  Receive Date: 20161223
  Receipt Date: 20190710
  Transmission Date: 20191004
  Serious: Yes (Hospitalization)
  Sender: FDA-Public Use
  Company Number: HT-IMPAX LABORATORIES, INC-2016-IPXL-02411

PATIENT
  Age: 35 Year
  Sex: Male

DRUGS (2)
  1. DIETHYLCARBAMAZINE [Suspect]
     Active Substance: DIETHYLCARBAMAZINE
     Indication: FILARIASIS LYMPHATIC
     Dosage: 6 MILLIGRAM/KILOGRAM, SINGLE
     Route: 048
     Dates: start: 20161129, end: 20161129
  2. ALBENZA [Suspect]
     Active Substance: ALBENDAZOLE
     Indication: FILARIASIS LYMPHATIC
     Dosage: 400 MILLIGRAM, SINGLE
     Route: 048
     Dates: start: 20161129, end: 20161129

REACTIONS (10)
  - Dysuria [Recovered/Resolved]
  - Gastritis [Recovered/Resolved]
  - Testicular swelling [Recovered/Resolved]
  - Pyrexia [Recovered/Resolved]
  - Nausea [Recovered/Resolved]
  - Off label use [Unknown]
  - Pain [Recovered/Resolved]
  - Vomiting [Recovered/Resolved]
  - Genitourinary tract infection [Recovered/Resolved]
  - Helicobacter infection [Recovered/Resolved]

NARRATIVE: CASE EVENT DATE: 20161128
